FAERS Safety Report 21897528 (Version 1)
Quarter: 2023Q1

REPORT INFORMATION
  Report Type: Spontaneous
  Country: US (occurrence: US)
  Receive Date: 20230123
  Receipt Date: 20230123
  Transmission Date: 20230418
  Serious: Yes (Other)
  Sender: FDA-Public Use
  Company Number: US-BOIRON-202300006

PATIENT
  Sex: Male

DRUGS (1)
  1. OSCILLOCOCCINUM [Suspect]
     Active Substance: CAIRINA MOSCHATA HEART/LIVER AUTOLYSATE
     Indication: Product used for unknown indication
     Dosage: UNK

REACTIONS (2)
  - Bladder cancer [Not Recovered/Not Resolved]
  - Haematuria [Unknown]
